FAERS Safety Report 15645020 (Version 1)
Quarter: 2018Q4

REPORT INFORMATION
  Report Type: Other
  Country: CA (occurrence: CA)
  Receive Date: 20181121
  Receipt Date: 20181121
  Transmission Date: 20190205
  Serious: Yes (Life-Threatening, Hospitalization)
  Sender: FDA-Public Use
  Company Number: CA-ARBOR PHARMACEUTICALS, LLC-CA-2018ARB001173

PATIENT
  Age: 45 Year
  Sex: Male

DRUGS (1)
  1. CIPROFLOXACIN\FLUOCINOLONE ACETONIDE [Suspect]
     Active Substance: CIPROFLOXACIN\FLUOCINOLONE ACETONIDE
     Indication: EAR OPERATION
     Dosage: 8 DF, BID
     Route: 001

REACTIONS (6)
  - Pharyngeal oedema [Recovered/Resolved]
  - Dyspnoea [Recovered/Resolved]
  - Headache [Recovered/Resolved]
  - Oropharyngeal pain [Recovered/Resolved]
  - Ear pruritus [Recovered/Resolved]
  - Cough [Recovered/Resolved]
